FAERS Safety Report 4370447-0 (Version None)
Quarter: 2004Q2

REPORT INFORMATION
  Report Type: 
  Country: None (occurrence: None)
  Receive Date: 20040603
  Receipt Date: 20030314
  Transmission Date: 20050107
  Serious: Yes (Hospitalization)
  Sender: FDA-Public Use
  Company Number: US-BRISTOL-MYERS SQUIBB COMPANY-12212221

PATIENT
  Age: 24 Year
  Sex: Male
  Weight: 77 kg

DRUGS (2)
  1. ABILIFY [Suspect]
     Indication: SCHIZOPHRENIA
     Dosage: TAKEN DEC-2002 TO JUL-2003; RESTARTED 21-FEB-2004 20 MG AND INCREASED TO 40MG.
     Route: 048
     Dates: start: 20021201
  2. DEPAKOTE [Concomitant]

REACTIONS (6)
  - ABDOMINAL PAIN [None]
  - ABNORMAL BEHAVIOUR [None]
  - CHEST PAIN [None]
  - DRUG INEFFECTIVE [None]
  - PRESCRIBED OVERDOSE [None]
  - VOMITING [None]
